FAERS Safety Report 12119585 (Version 1)
Quarter: 2016Q1

REPORT INFORMATION
  Report Type: Spontaneous
  Country: IT (occurrence: IT)
  Receive Date: 20160226
  Receipt Date: 20160226
  Transmission Date: 20160526
  Serious: Yes (Death, Other)
  Sender: FDA-Public Use
  Company Number: IT-CELGENE-ITA-2016023512

PATIENT

DRUGS (3)
  1. THALIDOMIDE CELGENE [Suspect]
     Active Substance: THALIDOMIDE
     Indication: PLASMA CELL MYELOMA
     Route: 048
  2. BORTEZOMIB [Concomitant]
     Active Substance: BORTEZOMIB
     Indication: PLASMA CELL MYELOMA
     Route: 065
  3. DEXAMETHASONE. [Concomitant]
     Active Substance: DEXAMETHASONE
     Indication: PLASMA CELL MYELOMA
     Route: 065

REACTIONS (8)
  - Thrombosis [Unknown]
  - Plasma cell myeloma recurrent [Unknown]
  - Rash [Unknown]
  - Neuropathy peripheral [Unknown]
  - Constipation [Unknown]
  - Fatigue [Unknown]
  - Multiple organ dysfunction syndrome [Fatal]
  - Viral sepsis [Fatal]
